FAERS Safety Report 10308482 (Version 2)
Quarter: 2014Q3

REPORT INFORMATION
  Report Type: Report from Study
  Country: US (occurrence: US)
  Receive Date: 20140716
  Receipt Date: 20140728
  Transmission Date: 20150326
  Serious: Yes (Hospitalization, Other)
  Sender: FDA-Public Use
  Company Number: PHEH2014US014117

PATIENT
  Age: 55 Year
  Sex: Female

DRUGS (3)
  1. RITALIN [Suspect]
     Active Substance: METHYLPHENIDATE HYDROCHLORIDE
     Indication: DEPRESSION
     Dosage: 5 MG, BID
     Route: 048
     Dates: start: 20140610, end: 20140707
  2. NEXIUM [Concomitant]
     Active Substance: ESOMEPRAZOLE MAGNESIUM
     Dosage: UNK UKN, UNK
  3. LEXAPRO [Concomitant]
     Active Substance: ESCITALOPRAM OXALATE
     Dosage: UNK UKN, UNK

REACTIONS (10)
  - Tremor [Unknown]
  - Dysuria [Unknown]
  - Hypoaesthesia [Unknown]
  - Speech disorder [Unknown]
  - Feeling abnormal [Unknown]
  - Asthenia [Unknown]
  - Obsessive-compulsive disorder [Unknown]
  - Cerebrovascular accident [Unknown]
  - Paranoia [Unknown]
  - Headache [Not Recovered/Not Resolved]

NARRATIVE: CASE EVENT DATE: 20140707
